FAERS Safety Report 18434265 (Version 2)
Quarter: 2020Q4

REPORT INFORMATION
  Report Type: Report from Study
  Country: None (occurrence: US)
  Receive Date: 20201027
  Receipt Date: 20201113
  Transmission Date: 20210114
  Serious: Yes (Other)
  Sender: FDA-Public Use
  Company Number: US-ABBVIE-20K-163-3619879-00

PATIENT
  Sex: Female
  Weight: 59.02 kg

DRUGS (2)
  1. HUMIRA [Suspect]
     Active Substance: ADALIMUMAB
     Indication: CROHN^S DISEASE
     Route: 058
     Dates: start: 2010
  2. HUMIRA [Suspect]
     Active Substance: ADALIMUMAB
     Route: 058

REACTIONS (7)
  - Colectomy [Unknown]
  - Large intestinal stenosis [Not Recovered/Not Resolved]
  - Vitamin B12 decreased [Recovering/Resolving]
  - Blood iron decreased [Recovering/Resolving]
  - Large intestinal stenosis [Recovered/Resolved]
  - Coeliac disease [Recovering/Resolving]
  - Blood immunoglobulin A increased [Recovering/Resolving]

NARRATIVE: CASE EVENT DATE: 2017
